FAERS Safety Report 11464351 (Version 3)
Quarter: 2015Q4

REPORT INFORMATION
  Report Type: Spontaneous
  Country: US (occurrence: US)
  Receive Date: 20150831
  Receipt Date: 20151104
  Transmission Date: 20160304
  Serious: No
  Sender: FDA-Public Use
  Company Number: US-ELI_LILLY_AND_COMPANY-US201107002068

PATIENT
  Age: 79 Year
  Sex: Female

DRUGS (15)
  1. CYMBALTA [Suspect]
     Active Substance: DULOXETINE HYDROCHLORIDE
     Indication: DIABETIC NEUROPATHY
     Dosage: 60 MG, QD
     Route: 065
  2. LIPITOR [Concomitant]
     Active Substance: ATORVASTATIN CALCIUM
  3. LEVOXYL [Concomitant]
     Active Substance: LEVOTHYROXINE SODIUM
  4. FORTEO [Suspect]
     Active Substance: TERIPARATIDE
     Indication: OSTEOPOROSIS
     Dosage: 20 UG, QD
     Route: 065
     Dates: start: 201103, end: 201106
  5. COUMADIN [Concomitant]
     Active Substance: WARFARIN SODIUM
  6. HYDROCODONE [Concomitant]
     Active Substance: HYDROCODONE
  7. KLOR-CON [Concomitant]
     Active Substance: POTASSIUM CHLORIDE
  8. SUCRALFATE. [Concomitant]
     Active Substance: SUCRALFATE
  9. BYSTOLIC [Concomitant]
     Active Substance: NEBIVOLOL HYDROCHLORIDE
     Indication: HYPERTENSION
  10. OMEPRAZOLE. [Concomitant]
     Active Substance: OMEPRAZOLE
  11. FUROSEMIDE. [Concomitant]
     Active Substance: FUROSEMIDE
  12. TRAMADOL. [Concomitant]
     Active Substance: TRAMADOL
  13. CALCIUM W/VITAMIN D                /00188401/ [Concomitant]
  14. VITAMIN D [Concomitant]
     Active Substance: CHOLECALCIFEROL
  15. COZAAR [Concomitant]
     Active Substance: LOSARTAN POTASSIUM

REACTIONS (14)
  - Influenza like illness [Unknown]
  - Malaise [Unknown]
  - Feeling abnormal [Unknown]
  - Intentional product misuse [Not Recovered/Not Resolved]
  - Musculoskeletal pain [Unknown]
  - Sleep disorder due to a general medical condition [Unknown]
  - Fall [Recovered/Resolved]
  - Pain [Unknown]
  - Fractured sacrum [Unknown]
  - Head injury [Unknown]
  - Balance disorder [Unknown]
  - Fall [Recovered/Resolved]
  - Contusion [Unknown]
  - Pain in extremity [Unknown]

NARRATIVE: CASE EVENT DATE: 201106
